FAERS Safety Report 15903319 (Version 1)
Quarter: 2019Q1

REPORT INFORMATION
  Report Type: Spontaneous
  Country: DE (occurrence: DE)
  Receive Date: 20190202
  Receipt Date: 20190202
  Transmission Date: 20190417
  Serious: Yes (Other)
  Sender: FDA-Public Use
  Company Number: DE-REGENERON PHARMACEUTICALS, INC.-2019-14902

PATIENT

DRUGS (1)
  1. EYLEA [Suspect]
     Active Substance: AFLIBERCEPT
     Indication: AGE-RELATED MACULAR DEGENERATION
     Dosage: 2 INJECTIONS, DOSE AND FREQUENCY WERE NOT REPORTED

REACTIONS (3)
  - Eye haemorrhage [Unknown]
  - Blindness [Unknown]
  - Foreign body sensation in eyes [Unknown]
